FAERS Safety Report 24610796 (Version 3)
Quarter: 2025Q3

REPORT INFORMATION
  Report Type: Spontaneous
  Country: US (occurrence: US)
  Receive Date: 20241112
  Receipt Date: 20250820
  Transmission Date: 20251020
  Serious: No
  Sender: SANOFI AVENTIS
  Company Number: US-SA-2024SA320852

PATIENT
  Age: 21 Year
  Sex: Female

DRUGS (11)
  1. KEVZARA [Suspect]
     Active Substance: SARILUMAB
     Indication: Rheumatoid arthritis
     Dosage: 200 MG, QOW
     Route: 058
     Dates: start: 20240917
  2. LACOSAMIDE [Concomitant]
     Active Substance: LACOSAMIDE
  3. HYDROXYCHLOROQUINE SULFATE [Concomitant]
     Active Substance: HYDROXYCHLOROQUINE SULFATE
  4. LACOSAMIDE [Concomitant]
     Active Substance: LACOSAMIDE
  5. LEFLUNOMIDE [Concomitant]
     Active Substance: LEFLUNOMIDE
  6. CELECOXIB [Concomitant]
     Active Substance: CELECOXIB
  7. BOOSTRIX [Concomitant]
     Active Substance: TETANUS TOXOID, REDUCED DIPHTHERIA TOXOID AND ACELLULAR PERTUSSIS VACCINE ADSORBED, TDAP
  8. FOLIC ACID [Concomitant]
     Active Substance: FOLIC ACID
  9. CLOBAZAM [Concomitant]
     Active Substance: CLOBAZAM
  10. CELECOXIB [Concomitant]
     Active Substance: CELECOXIB
  11. AZITHROMYCIN [Concomitant]
     Active Substance: AZITHROMYCIN

REACTIONS (5)
  - Pain [Unknown]
  - Decreased interest [Unknown]
  - Depressed mood [Unknown]
  - Feeling of despair [Unknown]
  - Drug ineffective [Unknown]

NARRATIVE: CASE EVENT DATE: 20240101
